FAERS Safety Report 8922639 (Version 2)
Quarter: 2012Q4

REPORT INFORMATION
  Report Type: 
  Country: DE (occurrence: DE)
  Receive Date: 20121123
  Receipt Date: 20121213
  Transmission Date: 20130627
  Serious: Yes (Other)
  Sender: FDA-Public Use
  Company Number: PHHY2012DE070381

PATIENT
  Sex: Female
  Weight: 96 kg

DRUGS (9)
  1. EUCREAS [Suspect]
     Indication: DIABETES MELLITUS
     Dosage: 1 DF(850 mg metf 50 mg vild), BID
     Route: 048
     Dates: start: 201203, end: 201205
  2. JALRA [Suspect]
     Indication: DIABETES MELLITUS
     Dosage: 1 DF, BID
     Route: 048
     Dates: start: 20120516, end: 201207
  3. GLIBENCLAMIDE [Suspect]
     Indication: DIABETES MELLITUS
     Dosage: 1 DF, TID
     Route: 048
     Dates: end: 201205
  4. SIMVAHEXAL [Concomitant]
     Dosage: 1 DF, BID
     Route: 048
  5. TRAMADOL [Concomitant]
     Dosage: 1 DF, BID
     Route: 048
  6. AAS [Concomitant]
     Dosage: 1 DF, QD
  7. RAMILICH COMP [Concomitant]
     Dosage: 1 DF, BID
  8. FUROBETA [Concomitant]
     Dosage: 1 DF, QD as needed
  9. FENTANYL [Concomitant]

REACTIONS (2)
  - Hyperglycaemia [Recovering/Resolving]
  - Diabetes mellitus inadequate control [Unknown]
